FAERS Safety Report 6390728-9 (Version None)
Quarter: 2009Q4

REPORT INFORMATION
  Report Type: 
  Country: None (occurrence: None)
  Receive Date: 20091006
  Receipt Date: 20090923
  Transmission Date: 20100525
  Serious: Yes (Other)
  Sender: FDA-Public Use
  Company Number: PHEH2009US11669

PATIENT
  Sex: Female

DRUGS (2)
  1. RECLAST [Suspect]
     Dosage: UNK
     Dates: start: 20080101, end: 20080101
  2. RECLAST [Suspect]
     Dosage: UNK
     Dates: start: 20090701

REACTIONS (1)
  - JAW DISORDER [None]
